FAERS Safety Report 12667521 (Version 6)
Quarter: 2017Q4

REPORT INFORMATION
  Report Type: Spontaneous
  Country: US (occurrence: US)
  Receive Date: 20160819
  Receipt Date: 20171106
  Transmission Date: 20180320
  Serious: Yes (Other)
  Sender: FDA-Public Use
  Company Number: US-PFIZER INC-2016393459

PATIENT
  Age: 83 Year
  Sex: Female
  Weight: 68.4 kg

DRUGS (3)
  1. VITAMIN D3 [Concomitant]
     Active Substance: CHOLECALCIFEROL
     Dosage: 2000 IU, UNK
  2. CENTRUM SILVER +50 [Concomitant]
     Dosage: UNK
  3. AROMASIN [Suspect]
     Active Substance: EXEMESTANE
     Indication: BREAST CANCER
     Dosage: 25 MG, 1X/DAY
     Dates: start: 201603

REACTIONS (5)
  - Tooth infection [Unknown]
  - Blood pressure increased [Recovered/Resolved]
  - Oral discomfort [Unknown]
  - Intraocular pressure increased [Unknown]
  - Amnesia [Unknown]

NARRATIVE: CASE EVENT DATE: 201710
